FAERS Safety Report 21767859 (Version 1)
Quarter: 2022Q4

REPORT INFORMATION
  Report Type: Spontaneous
  Country: US (occurrence: None)
  Receive Date: 20221221
  Receipt Date: 20221221
  Transmission Date: 20230112
  Serious: Yes (Hospitalization)
  Sender: FDA-Public Use
  Company Number: None

PATIENT
  Sex: Male

DRUGS (1)
  1. TRIUMEQ [Suspect]
     Active Substance: ABACAVIR SULFATE\DOLUTEGRAVIR SODIUM\LAMIVUDINE
     Indication: Asymptomatic HIV infection
     Dosage: OTHER STRENGTH : 600/50/300MG;?OTHER QUANTITY : 600/50/300MG;?FREQUENCY : DAILY;?
     Route: 048
     Dates: start: 20151202

REACTIONS (4)
  - Loss of consciousness [None]
  - Panic attack [None]
  - Hypertension [None]
  - Device occlusion [None]
